FAERS Safety Report 18969746 (Version 2)
Quarter: 2021Q1

REPORT INFORMATION
  Report Type: Spontaneous
  Country: IT (occurrence: IT)
  Receive Date: 20210304
  Receipt Date: 20210312
  Transmission Date: 20210420
  Serious: No
  Sender: FDA-Public Use
  Company Number: IT-PFIZER INC-2021199511

PATIENT
  Age: 12 Year
  Sex: Male
  Weight: 50 kg

DRUGS (10)
  1. ISOTRETINOIN. [Suspect]
     Active Substance: ISOTRETINOIN
     Dosage: 0.2 MG/KG, 1X/DAY (QD, LOW?DOSE (0.2 MG/KG/DAY EQUAL TO 10 MG/DAY))
     Dates: start: 201909, end: 201910
  2. PREDNISONE. [Suspect]
     Active Substance: PREDNISONE
     Indication: ACNE PUSTULAR
     Dosage: 12.5 MG, 1X/DAY
     Route: 048
  3. PREDNISONE. [Suspect]
     Active Substance: PREDNISONE
     Dosage: 10 MG, 1X/DAY
     Route: 048
  4. ISOTRETINOIN. [Suspect]
     Active Substance: ISOTRETINOIN
     Indication: ACNE PUSTULAR
     Dosage: 10 MG, 1X/DAY (QD (ALTERNATING DAY))
  5. CLINDAMYCIN. [Concomitant]
     Active Substance: CLINDAMYCIN
     Indication: ANTIBIOTIC THERAPY
     Dosage: 150 MG X 4/DAY
     Route: 048
  6. CEFTRIAXONE. [Concomitant]
     Active Substance: CEFTRIAXONE
     Indication: ANTIBIOTIC THERAPY
     Dosage: 1 G, 1X/DAY (QD)
     Route: 030
  7. AMOXICILLIN + CLAVULANIC ACID [Concomitant]
     Active Substance: AMOXICILLIN\CLAVULANIC ACID
     Indication: ANTIBIOTIC THERAPY
     Dosage: UNK
     Route: 048
  8. DOXYCYCLINE HYCLATE. [Suspect]
     Active Substance: DOXYCYCLINE HYCLATE
     Indication: ACNE PUSTULAR
     Dosage: UNK
  9. LYMECYCLINE [Suspect]
     Active Substance: LYMECYCLINE
     Indication: ACNE PUSTULAR
     Dosage: UNK
     Route: 061
  10. PREDNISONE. [Suspect]
     Active Substance: PREDNISONE
     Dosage: 25 MG, 1X/DAY
     Route: 048

REACTIONS (1)
  - Drug ineffective [Unknown]
